FAERS Safety Report 7449076-8 (Version None)
Quarter: 2011Q2

REPORT INFORMATION
  Report Type: 
  Country: None (occurrence: None)
  Receive Date: 20110502
  Receipt Date: 20090416
  Transmission Date: 20111010
  Serious: Yes (Death, Hospitalization, Other)
  Sender: FDA-Public Use
  Company Number: US-BAYER-200918357NA

PATIENT
  Sex: Male
  Weight: 67.12 kg

DRUGS (12)
  1. ACETYLSALICYLIC ACID SRT [Concomitant]
     Dosage: 81 MG, QD
     Route: 048
  2. AMIODARONE [Concomitant]
     Dosage: 150 MG, UNK
     Route: 042
     Dates: start: 20050915
  3. ATENOLOL [Concomitant]
     Dosage: 25 MG, QD
     Route: 048
  4. HEPARIN [Concomitant]
     Dosage: 30,000 CELL SAVER
     Dates: start: 20050915
  5. NIFEDICAL [Concomitant]
     Dosage: 60 MG, UNK
     Route: 048
     Dates: start: 20050101
  6. PROTAMINE SULFATE [Concomitant]
     Dosage: UNK
     Route: 042
     Dates: start: 20050915
  7. VERSED [Concomitant]
     Dosage: UNK
     Route: 042
     Dates: start: 20050915
  8. ANCEF [Concomitant]
     Dosage: 2 G, UNK
     Route: 042
     Dates: start: 20050915
  9. TRASYLOL [Suspect]
     Indication: CORONARY ARTERY BYPASS
     Dosage: 1 MILLILTER
     Route: 042
     Dates: start: 20050915, end: 20050915
  10. HEPARIN [Concomitant]
     Dosage: 15,000 UNITS PERFUSION PUMP
     Dates: start: 20050915
  11. MILRINONE [Concomitant]
     Dosage: 1 / 1
     Route: 042
     Dates: start: 20050915
  12. NOREPINEPHRINE BITARTRATE [Concomitant]
     Dosage: UNK
     Route: 042
     Dates: start: 20050915

REACTIONS (9)
  - DEATH [None]
  - RENAL FAILURE [None]
  - FEAR [None]
  - UNEVALUABLE EVENT [None]
  - INJURY [None]
  - PAIN [None]
  - DEPRESSION [None]
  - ANHEDONIA [None]
  - ANXIETY [None]
